FAERS Safety Report 6192895-9 (Version None)
Quarter: 2009Q2

REPORT INFORMATION
  Report Type: 
  Country: None (occurrence: None)
  Receive Date: 20090518
  Receipt Date: 20090508
  Transmission Date: 20091009
  Serious: Yes (Other)
  Sender: FDA-Public Use
  Company Number: CO-BAYER-200916297LA

PATIENT
  Age: 38 Year
  Sex: Female
  Weight: 52 kg

DRUGS (2)
  1. MIRENA [Suspect]
     Indication: CONTRACEPTION
     Route: 015
     Dates: start: 20090304, end: 20090417
  2. BOTULINUM TOXIN TYPE A [Concomitant]
     Indication: SKIN WRINKLING
     Route: 058
     Dates: start: 20090403, end: 20090403

REACTIONS (5)
  - AMAUROSIS [None]
  - DIPLOPIA [None]
  - MIGRAINE [None]
  - VAGINAL HAEMORRHAGE [None]
  - VISION BLURRED [None]
